FAERS Safety Report 7501570-7 (Version None)
Quarter: 2011Q2

REPORT INFORMATION
  Report Type: 
  Country: None (occurrence: None)
  Receive Date: 20110524
  Receipt Date: 20110516
  Transmission Date: 20111010
  Serious: Yes (Hospitalization, Other)
  Sender: FDA-Public Use
  Company Number: CA-ABBOTT-11P-028-0720183-00

PATIENT
  Sex: Female
  Weight: 59.02 kg

DRUGS (9)
  1. APO PREDNISONE [Concomitant]
     Indication: RHEUMATOID ARTHRITIS
  2. SULFASALAZINE [Concomitant]
     Indication: RHEUMATOID ARTHRITIS
  3. HUMIRA [Suspect]
     Indication: RHEUMATOID ARTHRITIS
     Route: 058
     Dates: start: 20061129
  4. NEXIUM [Concomitant]
     Indication: GASTRIC DISORDER
     Route: 048
  5. CALCITE 500+D [Concomitant]
     Indication: OSTEOPOROSIS
     Dosage: 400 UI/500 MG
  6. EURO FOLIC [Concomitant]
     Indication: PRODUCT USED FOR UNKNOWN INDICATION
     Dosage: WITH METHOTREXATE
  7. ACTONEL [Concomitant]
     Indication: OSTEOPOROSIS
     Dosage: 35 MG WEEKLY
  8. METHOTREXATE [Concomitant]
     Indication: RHEUMATOID ARTHRITIS
     Dosage: 2.5MG X 8 WEEKLY
     Route: 048
  9. SYNTHROID [Concomitant]
     Indication: THYROID DISORDER
     Route: 048

REACTIONS (6)
  - PAIN [None]
  - BONE EROSION [None]
  - ABDOMINAL PAIN [None]
  - ABDOMINAL DISTENSION [None]
  - GAIT DISTURBANCE [None]
  - BACK PAIN [None]
